FAERS Safety Report 21023260 (Version 1)
Quarter: 2022Q2

REPORT INFORMATION
  Report Type: Spontaneous
  Country: US (occurrence: None)
  Receive Date: 20220629
  Receipt Date: 20220629
  Transmission Date: 20220721
  Serious: Yes (Life-Threatening)
  Sender: FDA-Public Use
  Company Number: None

PATIENT
  Age: 66 Year
  Sex: Male

DRUGS (1)
  1. DULOXETINE HYDROCHLORIDE [Suspect]
     Active Substance: DULOXETINE HYDROCHLORIDE
     Indication: Pain
     Dosage: 1 TAB EVERY DAY
     Dates: start: 20211223, end: 20211223

REACTIONS (7)
  - Pruritus [None]
  - Mouth swelling [None]
  - Pharyngeal swelling [None]
  - Swollen tongue [None]
  - Dysphagia [None]
  - Lip swelling [None]
  - Anaphylactic reaction [None]

NARRATIVE: CASE EVENT DATE: 20220127
